FAERS Safety Report 6319662-7 (Version None)
Quarter: 2009Q3

REPORT INFORMATION
  Report Type: 
  Country: None (occurrence: None)
  Receive Date: 20090822
  Receipt Date: 20081001
  Transmission Date: 20100115
  Serious: No
  Sender: FDA-Public Use
  Company Number: US-ABBOTT-08P-163-0479598-00

PATIENT
  Sex: Male

DRUGS (2)
  1. NIASPAN [Suspect]
     Indication: DRUG USE FOR UNKNOWN INDICATION
     Dates: start: 20080101, end: 20080801
  2. NIASPAN [Suspect]
     Dates: start: 20080801

REACTIONS (7)
  - ASTHENIA [None]
  - DIARRHOEA [None]
  - FEELING OF BODY TEMPERATURE CHANGE [None]
  - FLUSHING [None]
  - NAUSEA [None]
  - PRURITUS [None]
  - SKIN BURNING SENSATION [None]
